FAERS Safety Report 6757636-2 (Version None)
Quarter: 2010Q2

REPORT INFORMATION
  Report Type: 
  Country: None (occurrence: None)
  Receive Date: 20100607
  Receipt Date: 20100526
  Transmission Date: 20101027
  Serious: Yes (Other)
  Sender: FDA-Public Use
  Company Number: US-ELI_LILLY_AND_COMPANY-US201005007167

PATIENT
  Sex: Female
  Weight: 94.331 kg

DRUGS (11)
  1. BYETTA [Suspect]
     Indication: TYPE 2 DIABETES MELLITUS
     Dosage: 5 U, DAILY (1/D)
     Route: 058
  2. BYETTA [Suspect]
     Dosage: 5 UG, 2/D
     Route: 058
  3. BYETTA [Suspect]
     Dosage: 10 UG, DAILY (1/D)
     Route: 058
     Dates: end: 20080306
  4. BYETTA [Suspect]
     Dosage: 10 UG, 2/D
     Route: 058
     Dates: start: 20080307, end: 20090101
  5. BYETTA [Suspect]
     Dosage: 5 UG, 2/D
     Route: 058
     Dates: start: 20100501, end: 20100520
  6. ATENOLOL [Concomitant]
  7. GLYBURIDE AND METFORMIN HCL [Concomitant]
  8. KLOR-CON [Concomitant]
  9. LISINOPRIL [Concomitant]
  10. SYNTHROID [Concomitant]
  11. TRICOR [Concomitant]

REACTIONS (3)
  - DIARRHOEA [None]
  - PANCREATITIS [None]
  - WEIGHT DECREASED [None]
